FAERS Safety Report 9030663 (Version 1)
Quarter: 2013Q1

REPORT INFORMATION
  Report Type: Spontaneous
  Country: US (occurrence: US)
  Receive Date: 20130123
  Receipt Date: 20130123
  Transmission Date: 20140127
  Serious: Yes (Hospitalization)
  Sender: FDA-Public Use
  Company Number: US-ASTRAZENECA-2013SE03778

PATIENT
  Age: 76 Year
  Sex: Female
  Weight: 117.9 kg

DRUGS (13)
  1. NEXIUM [Suspect]
     Indication: GASTROOESOPHAGEAL REFLUX DISEASE
     Route: 048
     Dates: start: 2008, end: 201210
  2. NEXIUM [Suspect]
     Indication: GASTROOESOPHAGEAL REFLUX DISEASE
     Route: 048
     Dates: start: 2012, end: 201210
  3. NEXIUM [Suspect]
     Indication: GASTROOESOPHAGEAL REFLUX DISEASE
     Route: 048
     Dates: start: 2012
  4. METOPROLOL SUCCINATE [Suspect]
     Indication: BLOOD PRESSURE ABNORMAL
     Route: 048
     Dates: start: 2008
  5. PRILOSEC [Suspect]
     Indication: GASTROOESOPHAGEAL REFLUX DISEASE
     Route: 048
  6. SIMVASTATIN [Suspect]
     Indication: BLOOD CHOLESTEROL ABNORMAL
     Route: 048
     Dates: start: 2008, end: 201211
  7. DIOVAN [Concomitant]
     Indication: ATRIAL FIBRILLATION
     Dosage: 80 MG/12.5 MG DAILY IN THE MORNING
     Route: 048
     Dates: start: 2008
  8. DILTIAZEM-HCL ER [Concomitant]
     Indication: ATRIAL FIBRILLATION
     Route: 048
     Dates: start: 2008
  9. ZETIA [Concomitant]
     Indication: BLOOD CHOLESTEROL ABNORMAL
     Route: 048
     Dates: start: 2008
  10. WARFARIN [Concomitant]
     Indication: ANTICOAGULANT THERAPY
     Route: 048
     Dates: start: 2008
  11. WARFARIN [Concomitant]
     Indication: ANTICOAGULANT THERAPY
     Dosage: 5.5
     Route: 048
     Dates: start: 2008
  12. CALCIUM [Concomitant]
     Route: 048
  13. POT CHLORIDE [Concomitant]
     Route: 048
     Dates: start: 2008

REACTIONS (7)
  - Medical device complication [Unknown]
  - Hypertension [Unknown]
  - International normalised ratio abnormal [Not Recovered/Not Resolved]
  - Head injury [Recovered/Resolved]
  - Erosive oesophagitis [Unknown]
  - Muscle spasms [Recovered/Resolved]
  - Off label use [Unknown]
